FAERS Safety Report 8971512 (Version 2)
Quarter: 2013Q1

REPORT INFORMATION
  Report Type: Spontaneous
  Country: CO (occurrence: CO)
  Receive Date: 20121218
  Receipt Date: 20130124
  Transmission Date: 20140127
  Serious: Yes (Other)
  Sender: FDA-Public Use
  Company Number: CO-009507513-1212COL006116

PATIENT
  Age: 34 Year
  Sex: Male
  Weight: 80 kg

DRUGS (6)
  1. PEG-INTRON [Suspect]
     Indication: HEPATITIS C
     Dosage: UNK
     Dates: start: 20120824
  2. PEG-INTRON [Suspect]
     Dosage: UNK
     Dates: start: 2012
  3. RIBAVIRIN [Suspect]
     Indication: HEPATITIS C
     Dosage: 1200 MG, QD
     Dates: start: 20120824
  4. RIBAVIRIN [Suspect]
     Dosage: UNK
     Dates: start: 2012
  5. VICTRELIS [Suspect]
     Indication: HEPATITIS C
     Dosage: UNK, TID
     Dates: start: 20120824
  6. VICTRELIS [Suspect]
     Dosage: UNK
     Dates: start: 2012

REACTIONS (2)
  - Gastrointestinal infection [Recovered/Resolved]
  - Pyrexia [Recovered/Resolved]
